FAERS Safety Report 4735086-8 (Version None)
Quarter: 2005Q3

REPORT INFORMATION
  Report Type: 
  Country: None (occurrence: None)
  Receive Date: 20050804
  Receipt Date: 20050427
  Transmission Date: 20060218
  Serious: Yes (Other)
  Sender: FDA-Public Use
  Company Number: US-MERCK-0505USA00267

PATIENT
  Age: 53 Year
  Sex: Male
  Weight: 102 kg

DRUGS (12)
  1. VIOXX [Suspect]
     Indication: PAIN
     Route: 048
     Dates: start: 20030101, end: 20040930
  2. VIOXX [Suspect]
     Route: 048
     Dates: start: 20021201
  3. VIOXX [Suspect]
     Indication: ARTHRITIS
     Route: 048
     Dates: start: 20030101, end: 20040930
  4. VIOXX [Suspect]
     Route: 048
     Dates: start: 20021201
  5. COUMADIN [Concomitant]
     Indication: CARDIAC VALVE DISEASE
     Route: 065
     Dates: start: 20000101, end: 20050101
  6. COUMADIN [Concomitant]
     Indication: HEART RATE IRREGULAR
     Route: 065
     Dates: start: 20000101, end: 20050101
  7. ASPIRIN [Concomitant]
     Route: 065
  8. AMBIEN [Concomitant]
     Route: 065
  9. ACETAMINOPHEN AND HYDROCODONE BITARTRATE [Concomitant]
     Route: 065
  10. NEURONTIN [Concomitant]
     Route: 065
  11. DIGITEK [Concomitant]
     Route: 065
  12. LIPITOR [Concomitant]
     Route: 065

REACTIONS (18)
  - ADVERSE EVENT [None]
  - ANGINA PECTORIS [None]
  - ANXIETY DISORDER [None]
  - CARDIAC DISORDER [None]
  - CHEST PAIN [None]
  - CHRONIC FATIGUE SYNDROME [None]
  - CONDITION AGGRAVATED [None]
  - DECREASED INTEREST [None]
  - DEPRESSION [None]
  - DIZZINESS [None]
  - DYSPNOEA [None]
  - HYPOAESTHESIA [None]
  - LOSS OF CONSCIOUSNESS [None]
  - MYOCARDIAL INFARCTION [None]
  - OVERDOSE [None]
  - PANIC DISORDER [None]
  - SUICIDAL IDEATION [None]
  - TACHYCARDIA [None]
